FAERS Safety Report 8582670-X (Version None)
Quarter: 2012Q3

REPORT INFORMATION
  Report Type: 
  Country: None (occurrence: None)
  Receive Date: 20120809
  Receipt Date: 20120807
  Transmission Date: 20120928
  Serious: No
  Sender: FDA-Public Use
  Company Number: US-PFIZER INC-2012192413

PATIENT
  Age: 61 Year
  Sex: Female
  Weight: 77.098 kg

DRUGS (4)
  1. LYRICA [Suspect]
     Indication: COCCYDYNIA
  2. LYRICA [Suspect]
     Indication: FIBROMYALGIA
     Dosage: 75 MG, 2X/DAY
     Route: 048
     Dates: start: 20120701
  3. SEROQUEL [Concomitant]
     Dosage: UNK
  4. DEPAKOTE [Concomitant]
     Dosage: UNK

REACTIONS (2)
  - PAIN [None]
  - FATIGUE [None]
